FAERS Safety Report 10707596 (Version 2)
Quarter: 2015Q1

REPORT INFORMATION
  Report Type: Report from Study
  Country: US (occurrence: US)
  Receive Date: 20150113
  Receipt Date: 20150128
  Transmission Date: 20150721
  Serious: Yes (Hospitalization)
  Sender: FDA-Public Use
  Company Number: US-ACTELION-A-NJ2014-110622

PATIENT
  Age: 79 Year
  Sex: Female

DRUGS (11)
  1. TYLENOL [Concomitant]
     Active Substance: ACETAMINOPHEN
  2. FLONASE [Concomitant]
     Active Substance: FLUTICASONE PROPIONATE
  3. WARFARIN [Concomitant]
     Active Substance: WARFARIN
  4. SONATA [Concomitant]
     Active Substance: ZALEPLON
  5. ZOLOFT [Concomitant]
     Active Substance: SERTRALINE HYDROCHLORIDE
  6. MULTIVITAMIN [Concomitant]
     Active Substance: VITAMINS
  7. ADVAIR HFA [Concomitant]
     Active Substance: FLUTICASONE PROPIONATE\SALMETEROL XINAFOATE
  8. METOPROLOL [Concomitant]
     Active Substance: METOPROLOL
  9. BIOTIN [Concomitant]
     Active Substance: BIOTIN
  10. MACITENTAN [Suspect]
     Active Substance: MACITENTAN
     Indication: PULMONARY ARTERIAL HYPERTENSION
     Dosage: 10 MG, QD
     Route: 048
     Dates: start: 201403
  11. ATORVASTATIN [Concomitant]
     Active Substance: ATORVASTATIN

REACTIONS (3)
  - Multi-organ failure [Unknown]
  - Septic shock [Not Recovered/Not Resolved]
  - Pneumococcal sepsis [Unknown]

NARRATIVE: CASE EVENT DATE: 20141212
